FAERS Safety Report 19758579 (Version 3)
Quarter: 2021Q3

REPORT INFORMATION
  Report Type: Spontaneous
  Country: US (occurrence: US)
  Receive Date: 20210827
  Receipt Date: 20210920
  Transmission Date: 20211014
  Serious: Yes (Hospitalization, Other)
  Sender: FDA-Public Use
  Company Number: US-SUNOVION-2021SUN003280

PATIENT
  Sex: Female
  Weight: 81 kg

DRUGS (4)
  1. DROSPIRENONE AND ETHINYL ESTRADIOL [Concomitant]
     Active Substance: DROSPIRENONE\ETHINYL ESTRADIOL
  2. HYDROCHLOROTHIAZIDE;VALSARTAN [Concomitant]
     Active Substance: HYDROCHLOROTHIAZIDE\VALSARTAN
  3. LACOSAMIDE. [Concomitant]
     Active Substance: LACOSAMIDE
  4. LATUDA [Suspect]
     Active Substance: LURASIDONE HYDROCHLORIDE
     Dosage: 80 MG
     Route: 048

REACTIONS (7)
  - Cerebrovascular accident [Recovering/Resolving]
  - Cerebral infarction [Unknown]
  - Seizure [Unknown]
  - Aphasia [Unknown]
  - Hypertension [Unknown]
  - Dysphonia [Unknown]
  - Facial discomfort [Unknown]
